FAERS Safety Report 9064601 (Version 2)
Quarter: 2013Q1

REPORT INFORMATION
  Report Type: Spontaneous
  Country: US (occurrence: US)
  Receive Date: 20130214
  Receipt Date: 20130314
  Transmission Date: 20140127
  Serious: No
  Sender: FDA-Public Use
  Company Number: US-BIOGENIDEC-2012BI061629

PATIENT
  Age: 59 None
  Sex: Female

DRUGS (2)
  1. AVONEX [Suspect]
     Indication: MULTIPLE SCLEROSIS
     Route: 030
     Dates: start: 20120628
  2. AVONEX [Suspect]
     Indication: MULTIPLE SCLEROSIS
     Route: 030
     Dates: start: 20120830

REACTIONS (11)
  - Tinnitus [Recovered/Resolved]
  - Gait disturbance [Recovered/Resolved]
  - Sensation of heaviness [Recovered/Resolved]
  - Vision blurred [Recovered/Resolved]
  - Mental impairment [Recovered/Resolved]
  - Multiple allergies [Not Recovered/Not Resolved]
  - Headache [Recovered/Resolved]
  - Influenza like illness [Not Recovered/Not Resolved]
  - Dizziness [Recovered/Resolved]
  - Malaise [Unknown]
  - Muscle spasms [Unknown]
